FAERS Safety Report 6149539-1 (Version None)
Quarter: 2009Q2

REPORT INFORMATION
  Report Type: 
  Country: None (occurrence: None)
  Receive Date: 20090409
  Receipt Date: 20090330
  Transmission Date: 20091009
  Serious: No
  Sender: FDA-Public Use
  Company Number: US-JNJFOC-20090400191

PATIENT
  Sex: Male
  Weight: 65.77 kg

DRUGS (5)
  1. FENTANYL TRANSDERMAL SYSTEM [Suspect]
     Indication: BONE PAIN
     Route: 062
  2. FENTANYL TRANSDERMAL SYSTEM [Suspect]
     Indication: BONE PAIN
     Route: 062
  3. DILAUDID [Concomitant]
     Indication: PAIN
     Route: 048
  4. ZANAFLEX [Concomitant]
     Dosage: 4 MG 1/2 TABLET 5 TIMES DAILY
     Route: 048
  5. ZANAFLEX [Concomitant]
     Indication: MUSCLE SPASMS
     Dosage: AT NIGHT
     Route: 048

REACTIONS (2)
  - DRUG DOSE OMISSION [None]
  - FEELING ABNORMAL [None]
